FAERS Safety Report 16557548 (Version 2)
Quarter: 2019Q3

REPORT INFORMATION
  Report Type: Spontaneous
  Country: GB (occurrence: GB)
  Receive Date: 20190711
  Receipt Date: 20190711
  Transmission Date: 20191004
  Serious: Yes (Other)
  Sender: FDA-Public Use
  Company Number: PHHY2016GB122335

PATIENT
  Age: 65 Year
  Sex: Male

DRUGS (9)
  1. METHOTREXATE. [Suspect]
     Active Substance: METHOTREXATE
     Indication: PSORIASIS
     Dosage: UNK
     Route: 062
  2. FUMARIC ACID [Suspect]
     Active Substance: FUMARIC ACID
     Indication: PSORIASIS
  3. HYDREA [Suspect]
     Active Substance: HYDROXYUREA
     Indication: PSORIASIS
     Dosage: UNK
     Route: 062
  4. CICLOSPORIN [Suspect]
     Active Substance: CYCLOSPORINE
     Indication: PSORIASIS
     Dosage: UNK
     Route: 062
  5. FUMARIC ACID [Suspect]
     Active Substance: FUMARIC ACID
     Indication: PSORIASIS
  6. ACITRETIN. [Suspect]
     Active Substance: ACITRETIN
     Indication: PSORIASIS
     Dosage: UNK
     Route: 062
  7. FUMARIC ACID [Suspect]
     Active Substance: FUMARIC ACID
     Indication: PSORIASIS
     Dosage: 360 MG, QD
     Route: 062
     Dates: start: 201012, end: 201201
  8. 5-FLUOROURACIL [Suspect]
     Active Substance: FLUOROURACIL
     Indication: PSORIASIS
     Dosage: UNK
     Route: 062
  9. STELARA [Suspect]
     Active Substance: USTEKINUMAB
     Indication: PSORIASIS
     Route: 058

REACTIONS (3)
  - Drug ineffective [Unknown]
  - Psoriasis [Not Recovered/Not Resolved]
  - Product quality issue [Unknown]

NARRATIVE: CASE EVENT DATE: 201506
